FAERS Safety Report 23320163 (Version 1)
Quarter: 2023Q4

REPORT INFORMATION
  Report Type: Report from Study
  Country: HN (occurrence: HN)
  Receive Date: 20231220
  Receipt Date: 20231220
  Transmission Date: 20240110
  Serious: Yes (Other)
  Sender: FDA-Public Use
  Company Number: HN-MYLANLABS-2023M1135511

PATIENT
  Sex: Male
  Weight: 68.03 kg

DRUGS (2)
  1. LIPITOR [Suspect]
     Active Substance: ATORVASTATIN CALCIUM
     Indication: Blood cholesterol abnormal
     Dosage: 1 DOSAGE FORM, QD (ONE TABLET DAILY)
     Route: 048
  2. LIPITOR [Suspect]
     Active Substance: ATORVASTATIN CALCIUM
     Indication: Blood triglycerides abnormal

REACTIONS (1)
  - Deafness [Recovered/Resolved]
